FAERS Safety Report 6934815-2 (Version None)
Quarter: 2010Q3

REPORT INFORMATION
  Report Type: 
  Country: None (occurrence: None)
  Receive Date: 20100820
  Receipt Date: 20100806
  Transmission Date: 20110219
  Serious: Yes (Hospitalization, Other)
  Sender: FDA-Public Use
  Company Number: PHHY2010FR52527

PATIENT
  Sex: Female

DRUGS (9)
  1. FEMARA [Suspect]
     Indication: BREAST CANCER
     Dosage: 2.5 MG, QD
     Route: 048
     Dates: start: 20090801
  2. ZOMETA [Suspect]
     Indication: BREAST CANCER
     Dosage: 4 UG, UNK
     Route: 042
     Dates: start: 20090801, end: 20091001
  3. AVASTIN [Suspect]
     Indication: BREAST CANCER
     Dosage: 15 UG, QD
     Route: 042
     Dates: start: 20090305, end: 20100120
  4. MYOCET [Suspect]
     Indication: BREAST CANCER
     Dosage: UNK
     Route: 042
     Dates: start: 20100224, end: 20100519
  5. ENDOXAN [Suspect]
     Indication: BREAST CANCER
     Dosage: UNK
     Route: 042
     Dates: start: 20100224, end: 20100519
  6. XELODA [Suspect]
     Indication: BREAST CANCER
     Dosage: UNK
     Dates: start: 20100609, end: 20100623
  7. CHEMOTHERAPEUTICS NOS [Concomitant]
     Indication: BREAST CANCER
     Dosage: UNK
  8. PACLITAXEL [Concomitant]
     Indication: BREAST CANCER
     Dosage: UNK
  9. DOCETAXEL [Concomitant]
     Indication: BREAST CANCER
     Dosage: UNK

REACTIONS (4)
  - GINGIVAL SWELLING [None]
  - TOOTH ABSCESS [None]
  - TOOTH EXTRACTION [None]
  - TOOTHACHE [None]
